FAERS Safety Report 12116226 (Version 1)
Quarter: 2016Q1

REPORT INFORMATION
  Report Type: Spontaneous
  Country: US (occurrence: US)
  Receive Date: 20160225
  Receipt Date: 20160225
  Transmission Date: 20160526
  Serious: No
  Sender: FDA-Public Use
  Company Number: US-MYLANLABS-2015M1035628

PATIENT
  Sex: Male

DRUGS (2)
  1. METOPROLOL TARTRATE TABLETS USP [Suspect]
     Active Substance: METOPROLOL TARTRATE
     Indication: OFF LABEL USE
  2. METOPROLOL TARTRATE TABLETS USP [Suspect]
     Active Substance: METOPROLOL TARTRATE
     Indication: HEART RATE
     Dosage: 50 MG, BID
     Route: 048

REACTIONS (5)
  - Confusional state [Not Recovered/Not Resolved]
  - Drug dose omission [Not Recovered/Not Resolved]
  - Amnesia [Not Recovered/Not Resolved]
  - Heart rate increased [Not Recovered/Not Resolved]
  - Vision blurred [Not Recovered/Not Resolved]

NARRATIVE: CASE EVENT DATE: 2015
